FAERS Safety Report 24005748 (Version 2)
Quarter: 2024Q2

REPORT INFORMATION
  Report Type: Spontaneous
  Country: US (occurrence: US)
  Receive Date: 20240624
  Receipt Date: 20240626
  Transmission Date: 20240716
  Serious: Yes (Other)
  Sender: FDA-Public Use
  Company Number: US-PFIZER INC-202400198707

PATIENT
  Age: 64 Year
  Sex: Female
  Weight: 72.8 kg

DRUGS (5)
  1. LOMOTIL [Suspect]
     Active Substance: ATROPINE SULFATE\DIPHENOXYLATE HYDROCHLORIDE
     Indication: Diarrhoea
     Dosage: ORAL 2.5-0.025 MG TABLETS UP TO FOUR TIMES A DAY
     Route: 048
     Dates: start: 20240617
  2. IMODIUM [Suspect]
     Active Substance: LOPERAMIDE HYDROCHLORIDE
     Indication: Diarrhoea
     Dosage: ONE TABLET AFTER EACH EPISODE (TAKING 8 A DAY)
     Dates: start: 20240617
  3. DEXAMETHASONE [Suspect]
     Active Substance: DEXAMETHASONE
     Indication: Chemotherapy
     Dosage: 4 MG, DAILY
     Route: 048
     Dates: start: 20240615
  4. DEXAMETHASONE [Suspect]
     Active Substance: DEXAMETHASONE
     Indication: Diarrhoea
  5. IRINOTECAN [Concomitant]
     Active Substance: IRINOTECAN
     Indication: Pancreatic carcinoma
     Dosage: 126MG EVERY TWO WEEKS
     Route: 042
     Dates: start: 20240614

REACTIONS (1)
  - Drug ineffective [Not Recovered/Not Resolved]

NARRATIVE: CASE EVENT DATE: 20240617
